FAERS Safety Report 4298900-9 (Version None)
Quarter: 2004Q1

REPORT INFORMATION
  Report Type: 
  Country: None (occurrence: None)
  Receive Date: 20040126
  Receipt Date: 20031110
  Transmission Date: 20041129
  Serious: No
  Sender: FDA-Public Use
  Company Number: USA031152133

PATIENT
  Age: 10 Year
  Sex: Male
  Weight: 71 kg

DRUGS (4)
  1. STRATTERA [Suspect]
     Indication: ATTENTION DEFICIT/HYPERACTIVITY DISORDER
     Dosage: 40 MG/DAY
     Dates: start: 20030801
  2. SINGULAIR [Concomitant]
  3. ALBUTEROL [Concomitant]
  4. XOPENEX [Concomitant]

REACTIONS (5)
  - COLD SWEAT [None]
  - EAR INFECTION [None]
  - HEART RATE INCREASED [None]
  - HYPERTENSION [None]
  - PHARYNGITIS [None]
